FAERS Safety Report 9128773 (Version 1)
Quarter: 2013Q1

REPORT INFORMATION
  Report Type: Spontaneous
  Country: US (occurrence: US)
  Receive Date: 20130228
  Receipt Date: 20130228
  Transmission Date: 20140127
  Serious: No
  Sender: FDA-Public Use
  Company Number: US-ABBOTT-12P-163-1016953-00

PATIENT
  Age: 75 Year
  Sex: Male
  Weight: 86.26 kg

DRUGS (2)
  1. ANDROGEL [Suspect]
     Indication: BLOOD TESTOSTERONE DECREASED
     Dosage: 3 PUMP ACTUATIONS PER DAY
     Dates: start: 201104
  2. ANDROGEL [Suspect]
     Dosage: 4 PUMP ACTUATIONS DAILY
     Dates: start: 2003, end: 201104

REACTIONS (1)
  - Blood testosterone decreased [Not Recovered/Not Resolved]
